FAERS Safety Report 9841160 (Version 1)
Quarter: 2013Q4

REPORT INFORMATION
  Report Type: Spontaneous
  Country: US (occurrence: None)
  Receive Date: 20131212
  Receipt Date: 20131212
  Transmission Date: 20140711
  Serious: Yes (Hospitalization)
  Sender: FDA-Public Use
  Company Number: 20130520CINRY4334

PATIENT
  Age: 33 Year
  Sex: Female

DRUGS (6)
  1. CINRYZE [Suspect]
     Indication: HEREDITARY ANGIOEDEMA
     Dosage: (1500 UNIT, 2 IN 1 WK)
     Route: 042
  2. CINRYZE [Suspect]
     Indication: PROPHYLAXIS
     Dosage: (1500 UNIT, 2 IN 1 WK)
     Route: 042
  3. SYMBICORT [Concomitant]
  4. DILAUDID [Concomitant]
  5. IBUPROFEN [Concomitant]
  6. ALBUTEROL [Concomitant]

REACTIONS (4)
  - Hereditary angioedema [None]
  - Dependence [None]
  - Drug dose omission [None]
  - Therapy change [None]
